FAERS Safety Report 24208581 (Version 1)
Quarter: 2024Q3

REPORT INFORMATION
  Report Type: Spontaneous
  Country: TR (occurrence: TR)
  Receive Date: 20240814
  Receipt Date: 20240814
  Transmission Date: 20241017
  Serious: Yes (Hospitalization, Other)
  Sender: MERCK
  Company Number: TR-009507513-2408TUR003114

PATIENT
  Age: 70 Year
  Sex: Male

DRUGS (1)
  1. PEMBROLIZUMAB [Suspect]
     Active Substance: PEMBROLIZUMAB
     Indication: Malignant melanoma stage III
     Dosage: 200 MILLIGRAM ^^FLAT DOSE^^, Q3W

REACTIONS (2)
  - Appendicitis perforated [Recovering/Resolving]
  - Drug eruption [Unknown]
